FAERS Safety Report 15517887 (Version 2)
Quarter: 2018Q4

REPORT INFORMATION
  Report Type: Report from Study
  Country: DE (occurrence: DE)
  Receive Date: 20181017
  Receipt Date: 20181217
  Transmission Date: 20190205
  Serious: Yes (Hospitalization)
  Sender: FDA-Public Use
  Company Number: DE-BAXTER-2018BAX025447

PATIENT
  Age: 80 Year
  Sex: Female
  Weight: 57 kg

DRUGS (51)
  1. DOXORUBICIN [Suspect]
     Active Substance: DOXORUBICIN
     Dosage: 39 MG, (INFUSION RATE 2.6 ML/MIN FROM 12:00 TO 12:15)
     Route: 041
     Dates: start: 20180731, end: 20180731
  2. PREDNISONE. [Suspect]
     Active Substance: PREDNISONE
     Indication: DIFFUSE LARGE B-CELL LYMPHOMA
     Dosage: 350 MG, UNK
     Route: 048
     Dates: start: 20180508, end: 20180513
  3. PREDNISONE. [Suspect]
     Active Substance: PREDNISONE
     Dosage: 350 MG, UNK
     Route: 048
     Dates: start: 20180416, end: 20180421
  4. RIXIMYO [Suspect]
     Active Substance: RITUXIMAB
     Indication: DIFFUSE LARGE B-CELL LYMPHOMA
     Dosage: 595 MG, UNK
     Route: 041
     Dates: start: 20180416, end: 20180416
  5. RIXIMYO [Suspect]
     Active Substance: RITUXIMAB
     Dosage: 586 MG, (INFUSION RATE 2.44 ML/MIN)
     Route: 041
     Dates: start: 20180820, end: 20180820
  6. PARACETAMOL [Concomitant]
     Active Substance: ACETAMINOPHEN
     Indication: PROPHYLAXIS
     Dosage: UNK
     Route: 048
     Dates: start: 20180416
  7. VINCRISTINE [Suspect]
     Active Substance: VINCRISTINE
     Dosage: 1 MG, (INFUSION RATE 1 ML/MIN FROM 11:20 TO 11:21)
     Route: 041
     Dates: start: 20180731, end: 20180731
  8. VINCRISTINE [Suspect]
     Active Substance: VINCRISTINE
     Dosage: 1 MG, (INFUSION RATE 1 ML/MIN FROM 11:50 TO 11:50)
     Route: 041
     Dates: start: 20180529, end: 20180529
  9. PREDNISONE. [Suspect]
     Active Substance: PREDNISONE
     Dosage: 350 MG, UNK
     Route: 048
     Dates: start: 20180709, end: 20180714
  10. RIXIMYO [Suspect]
     Active Substance: RITUXIMAB
     Dosage: 586 MG, (INFUSION RATE 2.44 ML/MIN)
     Route: 041
     Dates: start: 20180618, end: 20180618
  11. RIXIMYO [Suspect]
     Active Substance: RITUXIMAB
     Dosage: 586 MG, (INFUSION RATE 2.48 ML/MIN FROM 10:00 TO 14:00)
     Route: 041
     Dates: start: 20181022, end: 20181022
  12. ENDOXAN 1G [Suspect]
     Active Substance: CYCLOPHOSPHAMIDE
     Indication: DIFFUSE LARGE B-CELL LYMPHOMA
     Dosage: 628 MG, (INFUSION RATE 10.46 ML/MIN FROM 12:05 TO 13:05)
     Route: 041
     Dates: start: 20180508, end: 20180508
  13. ENDOXAN 1G [Suspect]
     Active Substance: CYCLOPHOSPHAMIDE
     Dosage: 625 MG, (INFUSION RATE 10.4 ML/MIN FROM 10:50 TO 11:50)
     Route: 041
     Dates: start: 20180710, end: 20180710
  14. DOXORUBICIN [Suspect]
     Active Substance: DOXORUBICIN
     Indication: PRODUCT USED FOR UNKNOWN INDICATION
     Dosage: 40 MG, (INFUSION RATE 2.66 ML/MIN)
     Route: 041
     Dates: start: 20180619, end: 20180619
  15. PREDNISONE. [Suspect]
     Active Substance: PREDNISONE
     Dosage: 300 MG, UNK
     Route: 048
     Dates: start: 20180619, end: 20180624
  16. RIXIMYO [Suspect]
     Active Substance: RITUXIMAB
     Dosage: 586 MG, (INFUSION RATE 2.44 ML/MIN)
     Route: 041
     Dates: start: 20180730, end: 20180730
  17. PALONOSETRON. [Concomitant]
     Active Substance: PALONOSETRON HYDROCHLORIDE
     Indication: PRODUCT USED FOR UNKNOWN INDICATION
     Dosage: UNK
     Route: 042
     Dates: start: 20180417
  18. MCT [Concomitant]
     Indication: PROPHYLAXIS
     Dosage: UNK
     Route: 048
     Dates: start: 20180628
  19. RANITIDIN [Concomitant]
     Active Substance: RANITIDINE HYDROCHLORIDE
     Indication: PROPHYLAXIS
     Dosage: UNK
     Route: 042
     Dates: start: 20180416
  20. DOXORUBICIN [Suspect]
     Active Substance: DOXORUBICIN
     Indication: DIFFUSE LARGE B-CELL LYMPHOMA
     Dosage: 39 MG, (INFUSION RATE 2.6 ML/MIN FROM 12:30 TO 12:45)
     Route: 041
     Dates: start: 20180710, end: 20180710
  21. PREDNISONE. [Suspect]
     Active Substance: PREDNISONE
     Indication: PRODUCT USED FOR UNKNOWN INDICATION
     Dosage: 300 MG, UNK
     Route: 048
     Dates: start: 20180529, end: 20180603
  22. PREDNISONE. [Suspect]
     Active Substance: PREDNISONE
     Dosage: 350 MG, UNK
     Route: 048
     Dates: start: 20180910, end: 20180915
  23. PREDNISONE. [Suspect]
     Active Substance: PREDNISONE
     Dosage: 350 MG, UNK
     Route: 048
     Dates: start: 20181119, end: 20181124
  24. PREDNISONE. [Suspect]
     Active Substance: PREDNISONE
     Dosage: 350 MG, UNK
     Route: 048
     Dates: start: 20181022, end: 20181027
  25. ENDOXAN 1G [Suspect]
     Active Substance: CYCLOPHOSPHAMIDE
     Indication: PRODUCT USED FOR UNKNOWN INDICATION
     Dosage: 625 MG, (INFUSION RATE 10.4 ML/MIN FROM 10:15 TO 11:15)
     Route: 041
     Dates: start: 20180731, end: 20180731
  26. ENDOXAN 1G [Suspect]
     Active Substance: CYCLOPHOSPHAMIDE
     Dosage: 628 MG, INFUSION RATE 10.46 ML/MIN FROM 10:45 TO 11:45)
     Route: 041
     Dates: start: 20180529, end: 20180529
  27. ENDOXAN 1G [Suspect]
     Active Substance: CYCLOPHOSPHAMIDE
     Dosage: 625 MG, (INFUSION RATE 10.4 ML/MIN)
     Route: 041
     Dates: start: 20180619, end: 20180619
  28. VINCRISTINE [Suspect]
     Active Substance: VINCRISTINE
     Indication: PRODUCT USED FOR UNKNOWN INDICATION
     Dosage: 1 MG, (INFUSION RATE 1 ML/MIN)
     Route: 041
     Dates: start: 20180619, end: 20180619
  29. PREDNISONE. [Suspect]
     Active Substance: PREDNISONE
     Dosage: 350 MG, UNK
     Route: 048
     Dates: start: 20180730, end: 20180804
  30. CLEMASTIN [Concomitant]
     Active Substance: CLEMASTINE
     Indication: PROPHYLAXIS
     Dosage: UNK
     Route: 042
     Dates: start: 20180416
  31. ENDOXAN 1G [Suspect]
     Active Substance: CYCLOPHOSPHAMIDE
     Dosage: 635 MG, (INFUSION RATE 10.58 ML/MIN FROM 10:15 TO 11:15)
     Route: 041
     Dates: start: 20180417, end: 20180417
  32. VINCRISTINE [Suspect]
     Active Substance: VINCRISTINE
     Dosage: 1 MG, INFUSION TIME 13:30
     Route: 041
     Dates: start: 20180417, end: 20180417
  33. DOXORUBICIN [Suspect]
     Active Substance: DOXORUBICIN
     Dosage: 40 MG, (INFUSION RATE 2.66 ML/MIN FROM 12:20 TO 12:35)
     Route: 041
     Dates: start: 20180529, end: 20180529
  34. DOXORUBICIN [Suspect]
     Active Substance: DOXORUBICIN
     Dosage: 40 MG, (INFUSION RATE 2.6 ML/MIN FROM 14:00 TO 14:15)
     Route: 041
     Dates: start: 20180508, end: 20180508
  35. DOXORUBICIN [Suspect]
     Active Substance: DOXORUBICIN
     Dosage: 40 MG, (INFUSION RATE 2.66 ML/MIN FROM 14:30 TO 14:45)
     Route: 041
     Dates: start: 20180417, end: 20180417
  36. RIXIMYO [Suspect]
     Active Substance: RITUXIMAB
     Dosage: 588 MG, (INFUSION RATE 2.45 ML/MIN)
     Route: 041
     Dates: start: 20180507, end: 20180507
  37. RIXIMYO [Suspect]
     Active Substance: RITUXIMAB
     Dosage: 588 MG, (INFUSION RATE 2.45 ML/MIN)
     Route: 041
     Dates: start: 20180528, end: 20180528
  38. RIXIMYO [Suspect]
     Active Substance: RITUXIMAB
     Dosage: 588 MG, (INFUSION RATE 2.45 ML/MIN)
     Route: 041
     Dates: start: 20180416, end: 20180416
  39. RIXIMYO [Suspect]
     Active Substance: RITUXIMAB
     Dosage: 586 MG, UNK
     Route: 041
     Dates: start: 20181119
  40. MESNA. [Concomitant]
     Active Substance: MESNA
     Indication: PRODUCT USED FOR UNKNOWN INDICATION
     Dosage: UNK
     Route: 042
     Dates: start: 20180417
  41. VINCRISTINE [Suspect]
     Active Substance: VINCRISTINE
     Indication: DIFFUSE LARGE B-CELL LYMPHOMA
     Dosage: 1 MG, INFUSION TIME 11:30
     Route: 041
     Dates: start: 20180417, end: 20180417
  42. VINCRISTINE [Suspect]
     Active Substance: VINCRISTINE
     Dosage: 1 MG, UNK
     Route: 041
     Dates: start: 20180508, end: 20180508
  43. PREDNISONE. [Suspect]
     Active Substance: PREDNISONE
     Dosage: 350 MG, UNK
     Route: 048
     Dates: start: 20180417, end: 20180422
  44. PREDNISONE. [Suspect]
     Active Substance: PREDNISONE
     Dosage: 350 MG, UNK
     Route: 048
     Dates: start: 20180820, end: 20180825
  45. DEXAMETHASONE. [Concomitant]
     Active Substance: DEXAMETHASONE
     Indication: PRODUCT USED FOR UNKNOWN INDICATION
     Dosage: UNK
     Route: 042
     Dates: start: 20180417
  46. ENDOXAN 1G [Suspect]
     Active Substance: CYCLOPHOSPHAMIDE
     Dosage: 628 MG, (INFUSION RATE 10.46 ML/MIN FROM 12:05 TO 13:05)
     Route: 041
     Dates: start: 20180417, end: 20180417
  47. VINCRISTINE [Suspect]
     Active Substance: VINCRISTINE
     Dosage: 1 MG, (INFUSION RATE 1 ML/MIN FROM 11:55 TO 11:56)
     Route: 041
     Dates: start: 20180710, end: 20180710
  48. DOXORUBICIN [Suspect]
     Active Substance: DOXORUBICIN
     Dosage: 40 MG, (INFUSION RATE 2.6 ML/MIN FROM 12:00 TO 12:15)
     Route: 041
     Dates: start: 20180417, end: 20180417
  49. RIXIMYO [Suspect]
     Active Substance: RITUXIMAB
     Indication: PRODUCT USED FOR UNKNOWN INDICATION
     Dosage: 595 MG, (INFUSION RATE 2.48 ML/MIN FROM 10:00 TO 14:00)
     Route: 041
     Dates: start: 20180910, end: 20180910
  50. RIXIMYO [Suspect]
     Active Substance: RITUXIMAB
     Dosage: 586 MG, (INFUSION RATE 2.4 ML/MIN)
     Route: 041
     Dates: start: 20180709, end: 20180709
  51. MOVICOL [Concomitant]
     Active Substance: POLYETHYLENE GLYCOL 3350\POTASSIUM CHLORIDE\SODIUM BICARBONATE\SODIUM CHLORIDE
     Indication: PROPHYLAXIS
     Dosage: UNK
     Route: 048
     Dates: start: 20180628

REACTIONS (5)
  - Fall [Recovered/Resolved with Sequelae]
  - Eructation [Not Recovered/Not Resolved]
  - Back pain [Recovered/Resolved with Sequelae]
  - Radius fracture [Recovered/Resolved with Sequelae]
  - Constipation [Recovered/Resolved]

NARRATIVE: CASE EVENT DATE: 20180427
